FAERS Safety Report 17840740 (Version 2)
Quarter: 2020Q2

REPORT INFORMATION
  Report Type: Report from Study
  Country: US (occurrence: US)
  Receive Date: 20200529
  Receipt Date: 20200603
  Transmission Date: 20200714
  Serious: Yes (Hospitalization, Other)
  Sender: FDA-Public Use
  Company Number: US-SHIRE-US202008246

PATIENT
  Age: 30 Year
  Sex: Female

DRUGS (3)
  1. TEDUGLUTIDE [Suspect]
     Active Substance: TEDUGLUTIDE
     Indication: SHORT-BOWEL SYNDROME
     Dosage: 6.75 MILLIGRAM, 1X/DAY:QD
     Route: 058
     Dates: start: 20200130
  2. TEDUGLUTIDE [Suspect]
     Active Substance: TEDUGLUTIDE
     Dosage: 0.675 UNK
     Route: 058
  3. TEDUGLUTIDE [Suspect]
     Active Substance: TEDUGLUTIDE
     Dosage: 6.75 MILLIGRAM, 1X/DAY:QD
     Route: 058
     Dates: start: 20200129

REACTIONS (10)
  - Dehydration [Not Recovered/Not Resolved]
  - Hypoglycaemia [Unknown]
  - Chest pain [Not Recovered/Not Resolved]
  - Tachycardia [Not Recovered/Not Resolved]
  - Product dose omission [Unknown]
  - Nausea [Unknown]
  - Weight decreased [Unknown]
  - Sepsis [Unknown]
  - Abdominal pain [Unknown]
  - Vomiting [Unknown]

NARRATIVE: CASE EVENT DATE: 20200223
